FAERS Safety Report 6000119-8 (Version None)
Quarter: 2008Q4

REPORT INFORMATION
  Report Type: 
  Country: None (occurrence: None)
  Receive Date: 20081211
  Receipt Date: 20081211
  Transmission Date: 20090506
  Serious: Yes (Hospitalization)
  Sender: FDA-Public Use
  Company Number: None

PATIENT
  Age: 59 Year
  Sex: Male
  Weight: 99.7913 kg

DRUGS (1)
  1. ZETIA [Suspect]
     Indication: LOW DENSITY LIPOPROTEIN INCREASED
     Dosage: 10MG DAILY PO
     Route: 048
     Dates: start: 20081207, end: 20081210

REACTIONS (3)
  - FATIGUE [None]
  - HYPOPHAGIA [None]
  - SOMNOLENCE [None]
